FAERS Safety Report 6102649-7 (Version None)
Quarter: 2009Q1

REPORT INFORMATION
  Report Type: 
  Country: None (occurrence: None)
  Receive Date: 20090304
  Receipt Date: 20081105
  Transmission Date: 20090719
  Serious: No
  Sender: FDA-Public Use
  Company Number: A0755838A

PATIENT
  Age: 59 Year
  Sex: Male

DRUGS (7)
  1. REQUIP XL [Suspect]
     Indication: RESTLESS LEGS SYNDROME
     Dates: start: 20080101
  2. XYREM [Suspect]
     Dosage: 4.5G AT NIGHT
  3. LAMOTRIGINE [Concomitant]
  4. ESCITALOPRAM [Concomitant]
  5. MODAFINIL [Concomitant]
  6. VITAMINS [Concomitant]
  7. ROPINIROLE [Concomitant]
     Dates: start: 20050101, end: 20080101

REACTIONS (1)
  - HYPOAESTHESIA [None]
